FAERS Safety Report 20719916 (Version 3)
Quarter: 2022Q3

REPORT INFORMATION
  Report Type: Spontaneous
  Country: HR (occurrence: HR)
  Receive Date: 20220418
  Receipt Date: 20220907
  Transmission Date: 20221026
  Serious: Yes (Hospitalization)
  Sender: FDA-Public Use
  Company Number: HR-ELI_LILLY_AND_COMPANY-HR202204003856

PATIENT
  Sex: Female

DRUGS (3)
  1. OLUMIANT [Suspect]
     Active Substance: BARICITINIB
     Indication: Rheumatoid arthritis
     Dosage: 4 MG, DAILY
     Route: 048
     Dates: start: 20180912, end: 201910
  2. PREDNISONE [Concomitant]
     Active Substance: PREDNISONE
     Indication: Product used for unknown indication
     Dosage: 7.5 MG, DAILY
     Route: 048
  3. IBUPROFEN [Concomitant]
     Active Substance: IBUPROFEN
     Indication: Product used for unknown indication
     Dosage: 600 MG, BID
     Route: 048

REACTIONS (1)
  - Endometrial adenocarcinoma [Recovered/Resolved]
